FAERS Safety Report 18211117 (Version 10)
Quarter: 2022Q2

REPORT INFORMATION
  Report Type: Spontaneous
  Country: JP (occurrence: JP)
  Receive Date: 20200830
  Receipt Date: 20220429
  Transmission Date: 20220721
  Serious: Yes (Hospitalization, Other)
  Sender: FDA-Public Use
  Company Number: JP-CHUGAI-A2020038904ROCHE

PATIENT
  Age: 16 Year
  Sex: Male
  Weight: 65 kg

DRUGS (6)
  1. HEMLIBRA [Suspect]
     Active Substance: EMICIZUMAB-KXWH
     Indication: Haemophilia A without inhibitors
     Route: 058
     Dates: start: 20190212, end: 20190312
  2. HEMLIBRA [Suspect]
     Active Substance: EMICIZUMAB-KXWH
     Route: 058
     Dates: start: 20190312
  3. XYZAL [Concomitant]
     Active Substance: LEVOCETIRIZINE DIHYDROCHLORIDE
     Dosage: DOSAGE IS UNCERTAIN.
     Route: 048
  4. EPHEDRA SINICA STEM\HERBALS [Concomitant]
     Active Substance: EPHEDRA SINICA STEM\HERBALS
     Dosage: DOSAGE IS UNCERTAIN.
     Route: 048
     Dates: start: 20190226, end: 20190402
  5. LEVOCETIRIZINE DIHYDROCHLORIDE [Concomitant]
     Active Substance: LEVOCETIRIZINE DIHYDROCHLORIDE
     Dosage: UNK
     Route: 048
     Dates: start: 20210305, end: 20210402
  6. BILASTINE [Concomitant]
     Active Substance: BILASTINE
     Dosage: UNK
     Route: 048
     Dates: start: 20210402

REACTIONS (6)
  - Haematoma [Recovered/Resolved]
  - Joint swelling [Recovering/Resolving]
  - Haemarthrosis [Unknown]
  - Activated partial thromboplastin time prolonged [Unknown]
  - Ligament injury [Recovered/Resolved]
  - Therapeutic response decreased [Unknown]

NARRATIVE: CASE EVENT DATE: 20200628
